FAERS Safety Report 7058336-4 (Version None)
Quarter: 2010Q4

REPORT INFORMATION
  Report Type: 
  Country: None (occurrence: None)
  Receive Date: 20101022
  Receipt Date: 20101007
  Transmission Date: 20110411
  Serious: No
  Sender: FDA-Public Use
  Company Number: US-PFIZER INC-2010131100

PATIENT
  Sex: Female
  Weight: 61.224 kg

DRUGS (2)
  1. NORVASC [Suspect]
     Indication: HYPERTENSION
     Dosage: 10 MG, UNK
     Route: 048
     Dates: end: 20100927
  2. TOPROL-XL [Concomitant]
     Dosage: 50 MG, UNK

REACTIONS (2)
  - FLATULENCE [None]
  - WEIGHT DECREASED [None]
